FAERS Safety Report 19959111 (Version 1)
Quarter: 2021Q4

REPORT INFORMATION
  Report Type: Other
  Country: US (occurrence: US)
  Receive Date: 20211015
  Receipt Date: 20211015
  Transmission Date: 20220303
  Serious: Yes (Other)
  Sender: FDA-Public Use
  Company Number: US-ROCHE-2935226

PATIENT
  Age: 27 Year
  Sex: Female

DRUGS (8)
  1. RITUXIMAB [Suspect]
     Active Substance: RITUXIMAB
     Indication: Hodgkin^s disease
     Route: 065
  2. RITUXIMAB [Suspect]
     Active Substance: RITUXIMAB
     Indication: Vanishing bile duct syndrome
  3. GEMCITABINE [Suspect]
     Active Substance: GEMCITABINE
     Indication: Hodgkin^s disease
     Route: 065
  4. GEMCITABINE [Suspect]
     Active Substance: GEMCITABINE
     Indication: Vanishing bile duct syndrome
  5. DEXAMETHASONE [Suspect]
     Active Substance: DEXAMETHASONE
     Indication: Hodgkin^s disease
     Route: 065
  6. DEXAMETHASONE [Suspect]
     Active Substance: DEXAMETHASONE
     Indication: Vanishing bile duct syndrome
  7. CISPLATIN [Suspect]
     Active Substance: CISPLATIN
     Indication: Hodgkin^s disease
     Route: 065
  8. CISPLATIN [Suspect]
     Active Substance: CISPLATIN
     Indication: Vanishing bile duct syndrome

REACTIONS (1)
  - Liver injury [Unknown]
